FAERS Safety Report 10263000 (Version 1)
Quarter: 2014Q2

REPORT INFORMATION
  Report Type: Spontaneous
  Country: US (occurrence: US)
  Receive Date: 20140626
  Receipt Date: 20140626
  Transmission Date: 20141212
  Serious: Yes (Congenital Anomaly)
  Sender: FDA-Public Use
  Company Number: US-ELI_LILLY_AND_COMPANY-US201406006587

PATIENT
  Sex: 0

DRUGS (1)
  1. PROZAC [Suspect]
     Indication: PRODUCT USED FOR UNKNOWN INDICATION

REACTIONS (12)
  - Congenital aortic stenosis [Unknown]
  - Atrial septal defect [Unknown]
  - Congenital mitral valve incompetence [Unknown]
  - Mitral valve incompetence [Unknown]
  - Cardiac murmur [Unknown]
  - Tricuspid valve incompetence [Unknown]
  - Pulmonary valve incompetence [Unknown]
  - Cardiac septal hypertrophy [Unknown]
  - Hypertrophic cardiomyopathy [Unknown]
  - Cardiac hypertrophy [Unknown]
  - Cardiac failure congestive [Unknown]
  - Foetal exposure during pregnancy [Recovered/Resolved]
